FAERS Safety Report 20360450 (Version 4)
Quarter: 2022Q4

REPORT INFORMATION
  Report Type: Report from Study
  Country: US (occurrence: US)
  Receive Date: 20220121
  Receipt Date: 20221108
  Transmission Date: 20230113
  Serious: Yes (Hospitalization, Other)
  Sender: FDA-Public Use
  Company Number: US-BoehringerIngelheim-2021-BI-075894

PATIENT
  Age: 63 Year
  Sex: Male

DRUGS (2)
  1. OFEV [Suspect]
     Active Substance: NINTEDANIB
     Indication: Idiopathic pulmonary fibrosis
     Route: 048
     Dates: start: 2019, end: 202101
  2. OFEV [Suspect]
     Active Substance: NINTEDANIB
     Route: 048
     Dates: start: 20210112

REACTIONS (8)
  - Myocardial infarction [Not Recovered/Not Resolved]
  - Thrombosis [Unknown]
  - Diverticulitis [Unknown]
  - Cerebrovascular accident [Not Recovered/Not Resolved]
  - Pulmonary thrombosis [Unknown]
  - Oxygen saturation decreased [Unknown]
  - Myocardial necrosis marker increased [Not Recovered/Not Resolved]
  - Blood pressure increased [Unknown]

NARRATIVE: CASE EVENT DATE: 20210101
